FAERS Safety Report 9871593 (Version 4)
Quarter: 2019Q4

REPORT INFORMATION
  Report Type: Spontaneous
  Country: US (occurrence: US)
  Receive Date: 20140205
  Receipt Date: 20191219
  Transmission Date: 20200122
  Serious: Yes (Hospitalization)
  Sender: FDA-Public Use
  Company Number: US-UCBSA-111095

PATIENT
  Age: 58 Year
  Sex: Female

DRUGS (6)
  1. CIMZIA [Suspect]
     Active Substance: CERTOLIZUMAB PEGOL
     Indication: CROHN^S DISEASE
     Dosage: 400 MG, MONTHLY (QM)
     Dates: start: 20110819, end: 201312
  2. PREDNISONE. [Concomitant]
     Active Substance: PREDNISONE
     Dates: start: 201312
  3. MVI [Concomitant]
     Active Substance: VITAMINS
     Dosage: UNK UNK, ONCE DAILY (QD)
  4. BONIVA [Concomitant]
     Active Substance: IBANDRONATE SODIUM
     Indication: OSTEOPOROSIS
     Dosage: UNK UNK, MONTHLY (QM)
     Dates: start: 2013
  5. TRIAMTERENE -HCTZ [Concomitant]
     Indication: HYPERTENSION
     Dosage: 37.5/25 MG
  6. VITAMIN D [Concomitant]
     Active Substance: VITAMIN D NOS
     Dosage: DOSE: 2000 (UNITS UNSPECIFIED).

REACTIONS (1)
  - Lymph gland infection [Recovered/Resolved]

NARRATIVE: CASE EVENT DATE: 20131218
